FAERS Safety Report 8180656-0 (Version None)
Quarter: 2012Q1

REPORT INFORMATION
  Report Type: 
  Country: None (occurrence: None)
  Receive Date: 20120221
  Receipt Date: 20120206
  Transmission Date: 20120608
  Serious: Yes (Other)
  Sender: FDA-Public Use
  Company Number: 2012PROUSA01049

PATIENT
  Sex: Male

DRUGS (1)
  1. PROVENGE [Suspect]
     Indication: PROSTATE CANCER METASTATIC
     Dosage: 250 ML, SINGLE ; 250 ML, SINGLE; 250 ML, SINGLE

REACTIONS (3)
  - CENTRAL NERVOUS SYSTEM NEOPLASM [None]
  - BRAIN NEOPLASM [None]
  - NEOPLASM [None]
